FAERS Safety Report 5695683-2 (Version None)
Quarter: 2008Q2

REPORT INFORMATION
  Report Type: 
  Country: None (occurrence: None)
  Receive Date: 20080407
  Receipt Date: 20080326
  Transmission Date: 20081010
  Serious: Yes (Hospitalization)
  Sender: FDA-Public Use
  Company Number: CA-BAYER-200815739NA

PATIENT
  Age: 84 Year
  Sex: Male
  Weight: 57 kg

DRUGS (5)
  1. SORAFENIB [Suspect]
     Indication: PROSTATE CANCER
     Dosage: UNIT DOSE: 200 MG
     Route: 048
     Dates: start: 20080213, end: 20080218
  2. BICALUTAMIDE [Suspect]
     Indication: PROSTATE CANCER
     Dosage: TOTAL DAILY DOSE: 50 MG
     Route: 048
     Dates: start: 20080213, end: 20080218
  3. PREDNISONE [Concomitant]
     Dosage: TOTAL DAILY DOSE: 10 MG
     Route: 048
  4. PREDNISONE [Concomitant]
     Dates: start: 20060103
  5. ZOLADEX [Concomitant]
     Dates: start: 20010822

REACTIONS (1)
  - HYPERSENSITIVITY [None]
